FAERS Safety Report 5883149-6 (Version None)
Quarter: 2008Q3

REPORT INFORMATION
  Report Type: 
  Country: None (occurrence: None)
  Receive Date: 20080913
  Receipt Date: 20080606
  Transmission Date: 20090109
  Serious: No
  Sender: FDA-Public Use
  Company Number: US-ABBOTT-08P-163-0455014-00

PATIENT
  Sex: Female

DRUGS (1)
  1. HUMIRA [Suspect]
     Indication: PSORIASIS

REACTIONS (6)
  - CHILLS [None]
  - COUGH [None]
  - EAR PAIN [None]
  - INJECTION SITE HAEMATOMA [None]
  - OROPHARYNGEAL PAIN [None]
  - RASH PAPULAR [None]
